FAERS Safety Report 25464357 (Version 1)
Quarter: 2025Q2

REPORT INFORMATION
  Report Type: Spontaneous
  Country: US (occurrence: US)
  Receive Date: 20250621
  Receipt Date: 20250621
  Transmission Date: 20250716
  Serious: No
  Sender: TOLMAR
  Company Number: US-TOLMAR, INC.-25US057646

PATIENT
  Sex: Female

DRUGS (3)
  1. ELIGARD [Suspect]
     Active Substance: LEUPROLIDE ACETATE
     Indication: Occupational exposure to product
     Dosage: 45 MILLIGRAM, Q 6 MONTH?EXPIRATION DATE: AUG-2026; UNK; UNK
     Route: 058
     Dates: start: 20250314
  2. ELIGARD [Suspect]
     Active Substance: LEUPROLIDE ACETATE
     Dosage: REPLACEMENT DOSE
     Route: 058
     Dates: start: 20250314
  3. DEVICE [Suspect]
     Active Substance: DEVICE
     Indication: Occupational exposure to product

REACTIONS (6)
  - Occupational exposure to product [Unknown]
  - Wrong technique in product usage process [Unknown]
  - Device leakage [Unknown]
  - Device occlusion [Unknown]
  - Syringe issue [Unknown]
  - Product quality issue [Unknown]

NARRATIVE: CASE EVENT DATE: 20250314
